FAERS Safety Report 10623542 (Version 1)
Quarter: 2014Q4

REPORT INFORMATION
  Report Type: Spontaneous
  Country: FR (occurrence: FR)
  Receive Date: 20141203
  Receipt Date: 20141203
  Transmission Date: 20150529
  Serious: Yes (Hospitalization)
  Sender: FDA-Public Use
  Company Number: FR-FRI-1000072734

PATIENT
  Age: 42 Year
  Sex: Female

DRUGS (7)
  1. THERALEN [Suspect]
     Active Substance: TRIMEPRAZINE
     Dosage: 40 GTT
     Route: 048
     Dates: end: 20140611
  2. RISPERDAL [Suspect]
     Active Substance: RISPERIDONE
     Dosage: 2 MG
  3. GAVISCON [Concomitant]
     Active Substance: ALUMINUM HYDROXIDE\MAGNESIUM CARBONATE
  4. APROVEL [Concomitant]
     Active Substance: IRBESARTAN
     Dosage: 150 MG
  5. TERCIAN [Suspect]
     Active Substance: CYAMEMAZINE
     Dosage: 2 DF
     Route: 048
     Dates: end: 20140611
  6. ESOMEPRAZOLE [Concomitant]
     Active Substance: ESOMEPRAZOLE
  7. ACAMPROSATE [Suspect]
     Active Substance: ACAMPROSATE
     Dosage: 6 DF
     Route: 048
     Dates: end: 201406

REACTIONS (2)
  - Hepatitis cholestatic [Recovered/Resolved]
  - Jaundice [Recovered/Resolved]

NARRATIVE: CASE EVENT DATE: 20140602
